FAERS Safety Report 7476707-9 (Version None)
Quarter: 2011Q2

REPORT INFORMATION
  Report Type: 
  Country: None (occurrence: None)
  Receive Date: 20110512
  Receipt Date: 20110428
  Transmission Date: 20111010
  Serious: Yes (Other)
  Sender: FDA-Public Use
  Company Number: US-ACTELION-A-US2011-43569

PATIENT

DRUGS (6)
  1. TOPAMAX [Concomitant]
  2. VIMPAT [Concomitant]
     Dosage: UNK
     Dates: start: 20101111
  3. VALIUM [Concomitant]
  4. TRILEPTAL [Concomitant]
     Dosage: 300
     Dates: start: 20100101
  5. ZAVESCA [Suspect]
     Indication: TAY-SACHS DISEASE
     Dosage: UNK
     Route: 048
     Dates: start: 20101216, end: 20101224
  6. KEPPRA [Concomitant]

REACTIONS (5)
  - CONVULSION [None]
  - MYOCLONUS [None]
  - ASTHENIA [None]
  - CONDITION AGGRAVATED [None]
  - EYE MOVEMENT DISORDER [None]
